FAERS Safety Report 6188860-8 (Version None)
Quarter: 2009Q2

REPORT INFORMATION
  Report Type: 
  Country: None (occurrence: None)
  Receive Date: 20090513
  Receipt Date: 20090429
  Transmission Date: 20091009
  Serious: Yes (Hospitalization)
  Sender: FDA-Public Use
  Company Number: SE-GENENTECH-272429

PATIENT
  Sex: Female

DRUGS (6)
  1. MABTHERA [Suspect]
     Indication: RHEUMATOID ARTHRITIS
     Dosage: 100 MG, UNK
     Route: 065
     Dates: start: 20080226, end: 20080311
  2. METHYLPREDNISOLONE 4MG TAB [Concomitant]
     Indication: PREMEDICATION
     Dosage: 125 MG, UNK
     Route: 042
  3. PARACETAMOL [Concomitant]
     Indication: PREMEDICATION
     Dosage: 500 MG, UNK
     Route: 048
  4. CLEMASTINE [Concomitant]
     Indication: PREMEDICATION
     Dosage: 1 MG, UNK
  5. METHOTREXATE [Concomitant]
     Indication: DRUG USE FOR UNKNOWN INDICATION
  6. PREDNISOLONE [Concomitant]
     Indication: DRUG USE FOR UNKNOWN INDICATION

REACTIONS (2)
  - ATRIAL FIBRILLATION [None]
  - CARDIAC FAILURE [None]
